FAERS Safety Report 9881038 (Version 2)
Quarter: 2014Q1

REPORT INFORMATION
  Report Type: Spontaneous
  Country: US (occurrence: US)
  Receive Date: 20140207
  Receipt Date: 20140213
  Transmission Date: 20141002
  Serious: Yes (Death, Life-Threatening)
  Sender: FDA-Public Use
  Company Number: 2014SP000356

PATIENT
  Age: 87 Year
  Sex: Male
  Weight: 72 kg

DRUGS (1)
  1. LATUDA [Suspect]
     Indication: DEMENTIA
     Route: 048

REACTIONS (3)
  - Choking [Fatal]
  - Coma [Not Recovered/Not Resolved]
  - Off label use [None]
